FAERS Safety Report 8959795 (Version 1)
Quarter: 2012Q4

REPORT INFORMATION
  Report Type: 
  Country: US (occurrence: US)
  Receive Date: 20121212
  Receipt Date: 20121212
  Transmission Date: 20130627
  Serious: No
  Sender: FDA-Public Use
  Company Number: US-009507513-1212USA002890

PATIENT
  Sex: Male

DRUGS (1)
  1. CORICIDIN HBP FLU [Suspect]
     Indication: NASOPHARYNGITIS
     Dosage: UNK UNK, Once
     Route: 048

REACTIONS (1)
  - Drug ineffective [Unknown]
